FAERS Safety Report 19517012 (Version 1)
Quarter: 2021Q3

REPORT INFORMATION
  Report Type: Report from Study
  Country: AT (occurrence: AT)
  Receive Date: 20210711
  Receipt Date: 20210711
  Transmission Date: 20211014
  Serious: Yes (Hospitalization, Other)
  Sender: FDA-Public Use
  Company Number: AT-BAUSCH-BL-2021-022661

PATIENT
  Age: 60 Year
  Sex: Male

DRUGS (1)
  1. METFORMIN [Suspect]
     Active Substance: METFORMIN HYDROCHLORIDE
     Indication: PRODUCT USED FOR UNKNOWN INDICATION
     Route: 065

REACTIONS (7)
  - Memory impairment [Unknown]
  - Cerebrovascular accident [Unknown]
  - Diabetic neuropathy [Unknown]
  - Blood glucose decreased [Unknown]
  - Hypoaesthesia [Unknown]
  - Glycosylated haemoglobin decreased [Unknown]
  - Sensory loss [Unknown]
